FAERS Safety Report 15630502 (Version 2)
Quarter: 2018Q4

REPORT INFORMATION
  Report Type: Spontaneous
  Country: US (occurrence: US)
  Receive Date: 20181119
  Receipt Date: 20181202
  Transmission Date: 20190205
  Serious: No
  Sender: FDA-Public Use
  Company Number: US-JNJFOC-20181106298

PATIENT
  Sex: Female
  Weight: 54.43 kg

DRUGS (2)
  1. FLUTICASONE FUROATE W/VILANTEROL TRIFENATATE [Concomitant]
     Active Substance: FLUTICASONE FUROATE\VILANTEROL TRIFENATATE
     Route: 065
  2. INVEGA SUSTENNA [Suspect]
     Active Substance: PALIPERIDONE PALMITATE
     Indication: SCHIZOPHRENIA
     Route: 030
     Dates: start: 201604

REACTIONS (9)
  - Galactorrhoea [Unknown]
  - Weight increased [Unknown]
  - Adverse drug reaction [Unknown]
  - Cough [Unknown]
  - Asthma [Unknown]
  - Amenorrhoea [Unknown]
  - Infertility female [Unknown]
  - Muscle spasms [Unknown]
  - Endometrial thickening [Unknown]
